FAERS Safety Report 8260412-5 (Version None)
Quarter: 2012Q2

REPORT INFORMATION
  Report Type: 
  Country: None (occurrence: None)
  Receive Date: 20120404
  Receipt Date: 20120328
  Transmission Date: 20120825
  Serious: Yes (Congenital Anomaly)
  Sender: FDA-Public Use
  Company Number: GXKR2012DE001162

PATIENT

DRUGS (2)
  1. FOLIC ACID [Concomitant]
     Dosage: MATERNAL DOSE: 5 [MG/D ]
     Route: 064
  2. LAMOTRGINE [Suspect]
     Dosage: MATERNAL DOSE: 400 [MG/D ]/ FIRST TRIMESTER 350 MG/D
     Route: 064

REACTIONS (4)
  - FOETAL EXPOSURE DURING PREGNANCY [None]
  - HIP DYSPLASIA [None]
  - THROMBOCYTOSIS [None]
  - HAEMANGIOMA [None]
